FAERS Safety Report 8286837-X (Version None)
Quarter: 2012Q2

REPORT INFORMATION
  Report Type: 
  Country: None (occurrence: None)
  Receive Date: 20120416
  Receipt Date: 20120403
  Transmission Date: 20120825
  Serious: Yes (Disabling, Other)
  Sender: FDA-Public Use
  Company Number: US-ELI_LILLY_AND_COMPANY-US201109007109

PATIENT
  Sex: Male
  Weight: 104.31 kg

DRUGS (3)
  1. EFFEXOR [Concomitant]
     Dosage: 225 MG, QD
     Dates: end: 20110701
  2. ZYPREXA [Suspect]
     Indication: PANIC DISORDER
     Dosage: 7.5 MG, UNK
     Dates: start: 20060106, end: 20080301
  3. EFFEXOR [Concomitant]
     Indication: PANIC DISORDER
     Dosage: 255 MG, QD
     Route: 048
     Dates: start: 20080301

REACTIONS (10)
  - ERECTILE DYSFUNCTION [None]
  - JOINT SWELLING [None]
  - OFF LABEL USE [None]
  - FOOT DEFORMITY [None]
  - GAIT DISTURBANCE [None]
  - ANGER [None]
  - OEDEMA PERIPHERAL [None]
  - WEIGHT INCREASED [None]
  - HYPERHIDROSIS [None]
  - PAIN [None]
